FAERS Safety Report 7395693-3 (Version None)
Quarter: 2011Q2

REPORT INFORMATION
  Report Type: 
  Country: None (occurrence: None)
  Receive Date: 20110405
  Receipt Date: 20101230
  Transmission Date: 20111010
  Serious: No
  Sender: FDA-Public Use
  Company Number: US-BAYER-2011-028526

PATIENT
  Sex: Female

DRUGS (4)
  1. CITRACAL PETITES [Suspect]
     Dosage: UNK
     Dates: start: 20101230
  2. ZIAC [Concomitant]
  3. ASPIRIN [Concomitant]
     Route: 048
  4. LISINOPRIL [Concomitant]

REACTIONS (1)
  - CHEST PAIN [None]
